FAERS Safety Report 6987129 (Version 3)
Quarter: 2014Q2

REPORT INFORMATION
  Report Type: Spontaneous
  Country: US (occurrence: US)
  Receive Date: 20090505
  Receipt Date: 20140512
  Transmission Date: 20141212
  Serious: No
  Sender: FDA-Public Use
  Company Number: US-ALEXION-A200900228

PATIENT
  Age: 15 Year
  Sex: Female

DRUGS (5)
  1. SOLIRIS [Suspect]
     Indication: PAROXYSMAL NOCTURNAL HAEMOGLOBINURIA
     Dosage: UNK
     Route: 042
     Dates: start: 200811, end: 200811
  2. SOLIRIS [Suspect]
     Indication: OFF LABEL USE
     Dosage: UNK
     Dates: start: 200901
  3. SOLIRIS [Suspect]
     Dosage: UNK, Q12D
     Route: 042
  4. SOLIRIS [Suspect]
     Dosage: 900 MG, QW
     Dates: start: 2009
  5. ACETAMINOPHEN [Concomitant]
     Indication: HEADACHE
     Dosage: UNK
     Route: 048

REACTIONS (4)
  - Pregnancy [Recovered/Resolved]
  - Off label use [Unknown]
  - Inappropriate schedule of drug administration [Unknown]
  - Haemolysis [Not Recovered/Not Resolved]
